FAERS Safety Report 8801622 (Version 2)
Quarter: 2012Q4

REPORT INFORMATION
  Report Type: Report from Study
  Country: DE (occurrence: DE)
  Receive Date: 20120921
  Receipt Date: 20121005
  Transmission Date: 20130627
  Serious: Yes (Hospitalization, Other)
  Sender: FDA-Public Use
  Company Number: DE-ROCHE-1102614

PATIENT
  Sex: Female
  Weight: 73 kg

DRUGS (19)
  1. HERCEPTIN [Suspect]
     Indication: METASTATIC GASTRIC CANCER
     Route: 042
     Dates: start: 20120814
  2. HERCEPTIN [Suspect]
     Indication: GASTRIC CANCER
  3. CISPLATIN [Suspect]
     Indication: METASTATIC GASTRIC CANCER
     Route: 042
     Dates: start: 20120814
  4. CISPLATIN [Suspect]
     Indication: GASTRIC CANCER
  5. APREPITANT [Concomitant]
     Route: 048
     Dates: start: 20120814
  6. ONDANSETRON [Concomitant]
     Route: 042
     Dates: start: 20120814
  7. DEXAMETHASON [Concomitant]
     Route: 042
     Dates: start: 20120814
  8. 5-FU [Concomitant]
     Indication: METASTATIC GASTRIC CANCER
     Route: 042
     Dates: start: 20120814
  9. AMITRIPTYLINE [Concomitant]
     Route: 065
  10. BISOPROLOL [Concomitant]
     Route: 065
  11. PREGABALIN [Concomitant]
     Route: 065
  12. METAMIZOL [Concomitant]
     Route: 065
  13. PARACODIN [Concomitant]
     Route: 065
  14. PANTOZOL [Concomitant]
     Route: 065
  15. TETRAZEPAM [Concomitant]
     Route: 065
  16. TORASEMID [Concomitant]
     Route: 065
  17. CERTOPARIN [Concomitant]
     Route: 058
  18. ALDACTONE [Concomitant]
     Route: 065
  19. HYDROMORPHONE [Concomitant]
     Route: 065

REACTIONS (11)
  - Chills [Not Recovered/Not Resolved]
  - Pyrexia [Not Recovered/Not Resolved]
  - Bronchospasm [Not Recovered/Not Resolved]
  - Dyspnoea [Recovered/Resolved]
  - Hypersensitivity [Recovered/Resolved]
  - Atrial fibrillation [Recovered/Resolved]
  - Nausea [Not Recovered/Not Resolved]
  - Vomiting [Not Recovered/Not Resolved]
  - Haematemesis [Not Recovered/Not Resolved]
  - Tumour ulceration [Recovered/Resolved]
  - Tumour haemorrhage [Recovered/Resolved]
